FAERS Safety Report 4742822-3 (Version None)
Quarter: 2005Q3

REPORT INFORMATION
  Report Type: 
  Country: None (occurrence: None)
  Receive Date: 20050811
  Receipt Date: 20050705
  Transmission Date: 20060218
  Serious: Yes (Life-Threatening, Other)
  Sender: FDA-Public Use
  Company Number: GB-GLAXOSMITHKLINE-B0386915A

PATIENT
  Age: 34 Year
  Sex: Female
  Weight: 59 kg

DRUGS (7)
  1. FLIXOTIDE [Suspect]
     Indication: ASTHMA
     Dosage: 500MCG TWICE PER DAY
     Route: 055
     Dates: start: 19980101
  2. SERETIDE [Suspect]
     Route: 055
     Dates: start: 20000101
  3. VENLAFAXINE [Concomitant]
     Indication: DEPRESSION
     Dosage: 150MG PER DAY
     Dates: start: 20020101
  4. SEPTRIN [Concomitant]
     Indication: BRONCHIECTASIS
     Dosage: 480MG TWICE PER DAY
     Route: 048
     Dates: start: 20040101
  5. AMOXICILLIN [Concomitant]
     Indication: BRONCHIECTASIS
     Dosage: 500MG TWICE PER DAY
     Dates: start: 20020101, end: 20040301
  6. COLOMYCIN [Concomitant]
     Indication: BRONCHIECTASIS
     Dates: start: 20040301, end: 20040401
  7. ALBUTEROL SULFATE HFA [Concomitant]
     Indication: ASTHMA
     Dosage: 2PUFF AS REQUIRED
     Route: 055
     Dates: start: 19980101

REACTIONS (4)
  - ADRENOCORTICAL INSUFFICIENCY ACUTE [None]
  - BLOOD CORTICOTROPHIN ABNORMAL [None]
  - BLOOD CORTISOL DECREASED [None]
  - BRONCHIECTASIS [None]
